FAERS Safety Report 4813396-3 (Version None)
Quarter: 2005Q4

REPORT INFORMATION
  Report Type: 
  Country: None (occurrence: None)
  Receive Date: 20051026
  Receipt Date: 20051010
  Transmission Date: 20060501
  Serious: Yes (Other)
  Sender: FDA-Public Use
  Company Number: US_0510122953

PATIENT
  Age: 57 Year
  Sex: Female

DRUGS (4)
  1. EVISTA [Suspect]
  2. OXYTROL [Concomitant]
  3. AVAPRO [Concomitant]
  4. WELLBUTRIN [Concomitant]

REACTIONS (2)
  - ALOPECIA [None]
  - CYSTOPEXY [None]
